FAERS Safety Report 14901815 (Version 2)
Quarter: 2018Q2

REPORT INFORMATION
  Report Type: Spontaneous
  Country: US (occurrence: US)
  Receive Date: 20180516
  Receipt Date: 20180607
  Transmission Date: 20180711
  Serious: Yes (Hospitalization, Disabling, Other)
  Sender: FDA-Public Use
  Company Number: US-PFIZER INC-2018199153

PATIENT
  Age: 56 Year
  Sex: Female
  Weight: 64.41 kg

DRUGS (1)
  1. XELJANZ [Suspect]
     Active Substance: TOFACITINIB CITRATE
     Dosage: UNK

REACTIONS (6)
  - Diplegia [Unknown]
  - Blindness unilateral [Unknown]
  - Optic neuritis [Unknown]
  - Demyelination [Unknown]
  - Brain stem syndrome [Unknown]
  - Myelitis transverse [Unknown]
